FAERS Safety Report 7394515-4 (Version None)
Quarter: 2011Q2

REPORT INFORMATION
  Report Type: 
  Country: None (occurrence: None)
  Receive Date: 20110405
  Receipt Date: 20110328
  Transmission Date: 20111010
  Serious: Yes (Hospitalization)
  Sender: FDA-Public Use
  Company Number: US-ROCHE-767996

PATIENT
  Age: 11 Year
  Sex: Female

DRUGS (16)
  1. OSELTAMIVIR [Suspect]
     Indication: H1N1 INFLUENZA
     Dosage: AN EMPIRIC 10-DAY PROPHYLACTIC COURSE WITHIN 48 H OF POST-EXPOSURE
     Route: 048
     Dates: start: 20090101
  2. AMOXICILLIN AND CLAVULANATE POTASSIUM [Concomitant]
  3. PREDNISONE [Suspect]
     Indication: IMMUNOSUPPRESSION
     Dosage: FREQUENCY REPORTED AS 6 MG EVERY OTHER DAY
     Route: 065
  4. TACROLIMUS [Suspect]
     Indication: IMMUNOSUPPRESSION
     Route: 065
  5. RITUXIMAB [Suspect]
     Dosage: FREQUENCY REPORTED AS TWO DOSES AT 600 MG/M2/DOSE TWO WEEK APPART
     Route: 042
  6. OSELTAMIVIR [Suspect]
     Dosage: COMPLETED 10-DAY COURSE AS A TREATMENT AFTER TESTED POSITIVE FOR 2009 H1N1 INFLUENZA A VIRUS
     Route: 048
     Dates: start: 20090101
  7. GAMUNEX [Concomitant]
  8. AZATHIOPRINE [Suspect]
     Indication: IMMUNOSUPPRESSION
     Route: 065
  9. CEFTRIAXONE [Concomitant]
     Route: 042
  10. METHYLPREDNISOLONE [Suspect]
     Indication: IMMUNOSUPPRESSION
     Dosage: DRUG REPORTED AS PULSE METHYLPREDNISOLONE
     Route: 065
  11. VALGANCICLOVIR [Concomitant]
     Indication: PROPHYLAXIS
  12. TRIMETHOPRIM/SULFAMETHOXAZOLE FORTE [Concomitant]
     Indication: PROPHYLAXIS
  13. INFLUENZA VACCINATION [Concomitant]
     Dosage: EIGHT DAYS AFTER HER LAST RITUXIMAB INFUSION.
     Dates: start: 20091105
  14. TACROLIMUS [Suspect]
     Dosage: INTENSIFIED WITH  TACROLIMUS LEVELS OF 8-10 NG/ML.
     Route: 065
  15. SIROLIMUS [Suspect]
     Indication: IMMUNOSUPPRESSION
     Route: 065
     Dates: start: 20090101
  16. MYCOPHENOLATE MOFETIL [Suspect]
     Indication: IMMUNOSUPPRESSION
     Route: 065

REACTIONS (4)
  - PATHOGEN RESISTANCE [None]
  - PNEUMONIA [None]
  - H1N1 INFLUENZA [None]
  - DRUG INEFFECTIVE [None]
